FAERS Safety Report 11395147 (Version 1)
Quarter: 2015Q3

REPORT INFORMATION
  Report Type: Other
  Country: GB (occurrence: GB)
  Receive Date: 20150819
  Receipt Date: 20150819
  Transmission Date: 20151125
  Serious: Yes (Hospitalization)
  Sender: FDA-Public Use
  Company Number: GB-TARO PHARMACEUTICALS USA.,INC-2015SUN01839

PATIENT
  Age: 70 Year
  Sex: Female

DRUGS (9)
  1. CARBAMAZEPINE. [Suspect]
     Active Substance: CARBAMAZEPINE
     Dosage: 200 MG, TID
     Route: 048
     Dates: start: 20150716, end: 20150725
  2. ATORVASTATIN [Concomitant]
     Active Substance: ATORVASTATIN
  3. CARBOCISTEINE [Concomitant]
     Active Substance: CARBOCYSTEINE
  4. WARFARIN [Concomitant]
     Active Substance: WARFARIN
  5. VERAPAMIL HYDROCHLORIDE. [Concomitant]
     Active Substance: VERAPAMIL HYDROCHLORIDE
  6. CARBAMAZEPINE. [Suspect]
     Active Substance: CARBAMAZEPINE
     Indication: TRIGEMINAL NEURALGIA
     Dosage: UNK, DOSE RECENTLY INCREASED THE WEEK PRIOR TO ADMISSION
     Route: 048
     Dates: end: 20150716
  7. DIGOXIN. [Concomitant]
     Active Substance: DIGOXIN
  8. LOSARTAN. [Concomitant]
     Active Substance: LOSARTAN
  9. TIOTROPIUM [Concomitant]
     Active Substance: TIOTROPIUM

REACTIONS (3)
  - Orthostatic hypotension [Not Recovered/Not Resolved]
  - Malaise [Unknown]
  - Balance disorder [Unknown]

NARRATIVE: CASE EVENT DATE: 20150722
